FAERS Safety Report 7586539-9 (Version None)
Quarter: 2011Q3

REPORT INFORMATION
  Report Type: 
  Country: None (occurrence: None)
  Receive Date: 20110701
  Receipt Date: 20110621
  Transmission Date: 20111222
  Serious: Yes (Other)
  Sender: FDA-Public Use
  Company Number: DE-ROCHE-786472

PATIENT
  Age: 54 Year
  Sex: Female

DRUGS (2)
  1. PEGASYS [Suspect]
     Indication: HEPATITIS C
     Dosage: ONLY 2 INJECTIONS GIVEN
     Route: 058
  2. COPEGUS [Suspect]
     Indication: HEPATITIS C
     Dosage: GIVEN FOR ONLY ONE WEEK
     Route: 048

REACTIONS (1)
  - DUBIN-JOHNSON SYNDROME [None]
